FAERS Safety Report 9677628 (Version 1)
Quarter: 2013Q4

REPORT INFORMATION
  Report Type: Spontaneous
  Country: NL (occurrence: NL)
  Receive Date: 20131108
  Receipt Date: 20131108
  Transmission Date: 20140711
  Serious: Yes (Hospitalization)
  Sender: FDA-Public Use
  Company Number: NL-NOVOPROD-391722

PATIENT
  Sex: Female

DRUGS (2)
  1. NOVOMIX 30 FLEXPEN [Suspect]
     Indication: PRODUCT USED FOR UNKNOWN INDICATION
     Route: 065
  2. NOVOMIX 30 FLEXPEN [Suspect]
     Route: 065

REACTIONS (4)
  - Dizziness [Unknown]
  - Vomiting [Unknown]
  - Chest pain [Unknown]
  - Blood glucose fluctuation [Unknown]
